FAERS Safety Report 5203767-8 (Version None)
Quarter: 2007Q1

REPORT INFORMATION
  Report Type: 
  Country: None (occurrence: None)
  Receive Date: 20070109
  Receipt Date: 20070109
  Transmission Date: 20070707
  Serious: Yes (Death)
  Sender: FDA-Public Use
  Company Number: None

PATIENT
  Sex: Female
  Weight: 64.8644 kg

DRUGS (7)
  1. REMICADE [Suspect]
     Indication: CROHN'S DISEASE
     Dosage: 300 MG Q8 WEEKS IV DRIP
     Route: 041
     Dates: start: 20040817, end: 20061219
  2. REMICADE [Suspect]
     Indication: RHEUMATOID ARTHRITIS
     Dosage: 300 MG Q8 WEEKS IV DRIP
     Route: 041
     Dates: start: 20040817, end: 20061219
  3. ASACOL [Concomitant]
  4. CLARITIN [Concomitant]
  5. PROTONIX [Concomitant]
  6. ASCORBIC ACID [Concomitant]
  7. NASACORT AQ [Concomitant]

REACTIONS (1)
  - MENINGITIS BACTERIAL [None]
